FAERS Safety Report 13007321 (Version 1)
Quarter: 2016Q4

REPORT INFORMATION
  Report Type: Spontaneous
  Country: GB (occurrence: GB)
  Receive Date: 20161207
  Receipt Date: 20161207
  Transmission Date: 20170207
  Serious: Yes (Other)
  Sender: FDA-Public Use
  Company Number: GB-TEVA-716330ACC

PATIENT
  Age: 26 Year
  Sex: Female
  Weight: 80 kg

DRUGS (9)
  1. WARFARIN [Interacting]
     Active Substance: WARFARIN
     Dosage: 7 MILLIGRAMS (MG) FOR 3 DAYS OF THE WEEK AND 6MG 4 DAYS OF THE WEEK
     Route: 048
     Dates: start: 20160901
  2. FOLIC ACID. [Concomitant]
     Active Substance: FOLIC ACID
     Dates: start: 20140214
  3. WARFARIN [Suspect]
     Active Substance: WARFARIN
     Indication: DEEP VEIN THROMBOSIS
     Dosage: VARIABLE
     Route: 048
     Dates: start: 20160718
  4. AMITRIPTYLINE [Concomitant]
     Active Substance: AMITRIPTYLINE
  5. WARFARIN [Interacting]
     Active Substance: WARFARIN
     Dosage: DAILY DOSES BETWEEN 10-11 MILLIGRAMS
     Route: 048
     Dates: start: 20161014, end: 20161111
  6. GOLIMUMAB [Interacting]
     Active Substance: GOLIMUMAB
     Indication: PSORIATIC ARTHROPATHY
     Route: 058
     Dates: start: 20160905
  7. OMEPRAZOLE. [Concomitant]
     Active Substance: OMEPRAZOLE
  8. SULFASALAZINE. [Concomitant]
     Active Substance: SULFASALAZINE
     Dates: start: 20151104
  9. METHOTREXATE. [Concomitant]
     Active Substance: METHOTREXATE
     Indication: PSORIATIC ARTHROPATHY
     Dates: start: 20140214

REACTIONS (3)
  - International normalised ratio decreased [Recovered/Resolved]
  - Coagulation time shortened [Not Recovered/Not Resolved]
  - Drug interaction [Recovered/Resolved]

NARRATIVE: CASE EVENT DATE: 20160907
